FAERS Safety Report 22279137 (Version 3)
Quarter: 2024Q4

REPORT INFORMATION
  Report Type: Spontaneous
  Country: US (occurrence: US)
  Receive Date: 20230503
  Receipt Date: 20241211
  Transmission Date: 20250115
  Serious: Yes (Other)
  Sender: PFIZER
  Company Number: US-PFIZER INC-PV202300077406

PATIENT
  Age: 70 Year
  Sex: Female

DRUGS (4)
  1. XELJANZ [Suspect]
     Active Substance: TOFACITINIB CITRATE
     Indication: Lichen planus
     Dosage: 5 MG
  2. MAGNESIUM [Concomitant]
     Active Substance: MAGNESIUM
     Dosage: UNK
  3. XIIDRA [Concomitant]
     Active Substance: LIFITEGRAST
     Dosage: UNK
  4. ALBUTEROL [Concomitant]
     Active Substance: ALBUTEROL
     Dosage: UNK

REACTIONS (6)
  - Pneumonia [Unknown]
  - Off label use [Unknown]
  - Multiple allergies [Unknown]
  - Eye infection [Unknown]
  - Rhinitis allergic [Not Recovered/Not Resolved]
  - Decreased immune responsiveness [Unknown]
